FAERS Safety Report 17337429 (Version 3)
Quarter: 2020Q1

REPORT INFORMATION
  Report Type: Spontaneous
  Country: IL (occurrence: IL)
  Receive Date: 20200129
  Receipt Date: 20200306
  Transmission Date: 20200409
  Serious: Yes (Hospitalization, Other)
  Sender: FDA-Public Use
  Company Number: IL-CELLTRION INC.-2020IL018312

PATIENT

DRUGS (2)
  1. TRUXIMA [Suspect]
     Active Substance: RITUXIMAB-ABBS
     Indication: B-CELL LYMPHOMA
     Dosage: 375 MG/M2
     Route: 065
  2. BENDAMUSTINE [Concomitant]
     Active Substance: BENDAMUSTINE

REACTIONS (6)
  - Pneumonitis [Recovering/Resolving]
  - Lung infiltration [Recovering/Resolving]
  - Cytomegalovirus test positive [Recovering/Resolving]
  - Cardiac failure [Recovering/Resolving]
  - Pulmonary congestion [Recovering/Resolving]
  - Cardiac dysfunction [Recovering/Resolving]
